FAERS Safety Report 11293362 (Version 3)
Quarter: 2015Q3

REPORT INFORMATION
  Report Type: Report from Study
  Country: US (occurrence: US)
  Receive Date: 20150722
  Receipt Date: 20150821
  Transmission Date: 20151125
  Serious: Yes (Other)
  Sender: FDA-Public Use
  Company Number: US-GILEAD-2015-0163585

PATIENT
  Age: 63 Year
  Sex: Female

DRUGS (10)
  1. LEDIPASVIR/SOFOSBUVIR [Suspect]
     Active Substance: LEDIPASVIR\SOFOSBUVIR
     Indication: CHRONIC HEPATITIS C
     Dosage: 1 DF, UNK
     Route: 048
     Dates: start: 20150601, end: 20150603
  2. OXYCODONE [Concomitant]
     Active Substance: OXYCODONE
     Indication: INTERVERTEBRAL DISC DEGENERATION
     Dosage: UNK
     Dates: start: 2013
  3. LEDIPASVIR/SOFOSBUVIR [Suspect]
     Active Substance: LEDIPASVIR\SOFOSBUVIR
     Dosage: 1 DF, UNK
     Route: 048
     Dates: start: 2015
  4. CLONIDINE. [Suspect]
     Active Substance: CLONIDINE
     Indication: HYPERTENSION
     Dosage: UNK
     Route: 048
     Dates: start: 20150523
  5. PULMICORT TURBUHALER [Concomitant]
     Active Substance: BUDESONIDE
     Indication: ASTHMA
     Dosage: UNK
     Dates: start: 1961
  6. VENTOLIN [Concomitant]
     Active Substance: ALBUTEROL SULFATE
     Indication: ASTHMA
     Dosage: UNK
     Dates: start: 1961
  7. ALPRAZOLAM. [Concomitant]
     Active Substance: ALPRAZOLAM
     Indication: POST-TRAUMATIC STRESS DISORDER
     Dosage: UNK
     Dates: start: 2010
  8. PULMICORT TURBUHALER [Concomitant]
     Active Substance: BUDESONIDE
     Indication: CHRONIC OBSTRUCTIVE PULMONARY DISEASE
  9. VENTOLIN [Concomitant]
     Active Substance: ALBUTEROL SULFATE
     Indication: CHRONIC OBSTRUCTIVE PULMONARY DISEASE
  10. PROTONIX [Concomitant]
     Active Substance: PANTOPRAZOLE SODIUM
     Indication: GASTROOESOPHAGEAL REFLUX DISEASE
     Dosage: UNK
     Dates: start: 20150101

REACTIONS (24)
  - Asthenia [Unknown]
  - Peripheral swelling [Unknown]
  - Malaise [Unknown]
  - Lip dry [Unknown]
  - Blood pressure increased [Unknown]
  - Mental impairment [Unknown]
  - Feeling cold [Unknown]
  - Tremor [Unknown]
  - Renal pain [Unknown]
  - Chills [Unknown]
  - Vomiting [Unknown]
  - Dyspnoea [Unknown]
  - Heart rate decreased [Unknown]
  - Disorientation [Unknown]
  - Somnolence [Unknown]
  - Asthma [Unknown]
  - Dysuria [Unknown]
  - Vulvovaginal mycotic infection [Unknown]
  - Heart rate increased [Unknown]
  - Dysphagia [Unknown]
  - Chest pain [Unknown]
  - Vision blurred [Unknown]
  - Urinary tract infection [Recovering/Resolving]
  - Cyanosis [Unknown]

NARRATIVE: CASE EVENT DATE: 20150601
